FAERS Safety Report 20655874 (Version 2)
Quarter: 2022Q3

REPORT INFORMATION
  Report Type: Spontaneous
  Country: GB (occurrence: GB)
  Receive Date: 20220330
  Receipt Date: 20220729
  Transmission Date: 20221027
  Serious: Yes (Hospitalization, Other)
  Sender: FDA-Public Use
  Company Number: GB-EMA-DD-20190311-kumarsingh_a-170148

PATIENT
  Age: 26 Year
  Sex: Female

DRUGS (20)
  1. ARIPIPRAZOLE [Suspect]
     Active Substance: ARIPIPRAZOLE
     Indication: Product used for unknown indication
     Dosage: THERAPY END DATE : ASKU, UNK, ADDITIONAL INFO: OVERDOSE, MEDICATION ERROR, OFF LABEL USE, UNKNOWN; ;
     Route: 065
     Dates: start: 201903
  2. ARIPIPRAZOLE [Suspect]
     Active Substance: ARIPIPRAZOLE
     Indication: Affective disorder
  3. ARIPIPRAZOLE [Suspect]
     Active Substance: ARIPIPRAZOLE
     Indication: Schizophrenia
  4. TOPIRAMATE [Suspect]
     Active Substance: TOPIRAMATE
     Indication: Affective disorder
     Dosage: 25 MILLIGRAM, BID (25 MG, BID)
     Route: 048
     Dates: start: 201903
  5. TOPIRAMATE [Suspect]
     Active Substance: TOPIRAMATE
     Indication: Affective disorder
     Dosage: 50 MILLIGRAM DAILY; 25 MG, BID, THERAPY START DATE AND END DATE : ASKU
     Route: 048
     Dates: start: 201603
  6. TOPIRAMATE [Suspect]
     Active Substance: TOPIRAMATE
     Dosage: 100 MILLIGRAM DAILY; 100 MG, QD (50 MG QD, 50 MG QD), ADDITIONAL INFO: OVERDOSE, MEDICATION ERROR, O
  7. MIRTAZAPINE [Suspect]
     Active Substance: MIRTAZAPINE
     Indication: Depression
     Dosage: 45 MG,
     Route: 048
  8. MIRTAZAPINE [Suspect]
     Active Substance: MIRTAZAPINE
     Dosage: UNK, 45 MILLIGRAM, (45 MG, UNK), DURATION: 2 YEARS, ADDITIONAL INFO: OVERDOSE, MEDICATION ERROR, OFF
     Dates: start: 201903, end: 20220208
  9. VENLAFAXINE [Suspect]
     Active Substance: VENLAFAXINE HYDROCHLORIDE
     Indication: Product used for unknown indication
     Dosage: UNIT DOSE: 75 MG, UNK, ADDITIONAL INFO: ROUTE:UNKNOWNOVERDOSE, OFF LABEL USEADDITIONAL INFO: OVERDOS
     Route: 065
     Dates: start: 201903
  10. VENLAFAXINE [Suspect]
     Active Substance: VENLAFAXINE HYDROCHLORIDE
     Indication: Anxiolytic therapy
  11. CLOZARIL [Suspect]
     Active Substance: CLOZAPINE
     Indication: Schizophrenia
     Dosage: 100 MILLIGRAM DAILY; 100 MG, AM, 300 MG, QD (100 MG AM AND 200 MG PM), DDITIONAL INFO: OVERDOSE, MED
     Route: 048
     Dates: start: 20160606
  12. CLOZARIL [Suspect]
     Active Substance: CLOZAPINE
     Indication: Depression
     Dosage: UNK, FREQUENCY TIME: 1 DAYS, ADDITIONAL INFO: OVERDOSE, MEDICATION ERROR, OFF LABEL USEADDITIONAL IN
     Route: 048
     Dates: start: 20181128
  13. CLOZARIL [Suspect]
     Active Substance: CLOZAPINE
     Dosage: 200 MG, PM, 100 MG AM (300 MG, QD) 100 MG AM AND 200 MG PM), 100 MG QD
     Route: 048
     Dates: start: 20160606
  14. CLOZARIL [Suspect]
     Active Substance: CLOZAPINE
     Dosage: 550 MILLIGRAM
     Route: 048
     Dates: start: 201903
  15. CLOZARIL [Suspect]
     Active Substance: CLOZAPINE
     Dosage: 300 MILLIGRAM DAILY; 300 MG, QD (100 MG AM AND 200 MG PM), ADDITIONAL INFO: OVERDOSE, MEDICATION ERR
     Route: 048
     Dates: start: 20160606
  16. TOPIRAMATE [Suspect]
     Active Substance: TOPIRAMATE
     Indication: Affective disorder
     Dosage: 50 MILLIGRAM DAILY; 50 MG, QD, THERAPY START DATE AND END DATE : ASKU, FREQUENCY TIME : 1 DAYS, ADDI
     Route: 048
  17. TOPIRAMATE [Suspect]
     Active Substance: TOPIRAMATE
     Dosage: UNK, THERAPY END DATE : ASKU
     Route: 048
     Dates: start: 201903
  18. TOPIRAMATE [Suspect]
     Active Substance: TOPIRAMATE
     Dosage: 25 MILLIGRAM DAILY; 25 MG, BID, THERAPY START DATE AND END DATE : ASKU
     Route: 048
  19. TOPIRAMATE [Suspect]
     Active Substance: TOPIRAMATE
     Dosage: UNK, THERAPY START DATE AND END DATE : ASKU
     Route: 048
  20. PREGABALIN [Concomitant]
     Active Substance: PREGABALIN
     Indication: Anxiolytic therapy
     Dosage: 75 MG, UNK
     Route: 048

REACTIONS (5)
  - Pyrexia [Recovered/Resolved]
  - Overdose [Unknown]
  - Infection [Unknown]
  - Off label use [Unknown]
  - Product use in unapproved indication [Unknown]

NARRATIVE: CASE EVENT DATE: 20161010
